FAERS Safety Report 6544988-1 (Version None)
Quarter: 2010Q1

REPORT INFORMATION
  Report Type: 
  Country: None (occurrence: None)
  Receive Date: 20100121
  Receipt Date: 20091201
  Transmission Date: 20100710
  Serious: Yes (Hospitalization)
  Sender: FDA-Public Use
  Company Number: A0832067A

PATIENT
  Age: 55 Year
  Sex: Female
  Weight: 70 kg

DRUGS (11)
  1. AVANDIA [Suspect]
     Dosage: 4MG PER DAY
     Route: 048
     Dates: start: 20030401, end: 20070101
  2. TIAZAC [Concomitant]
  3. LOTENSIN [Concomitant]
  4. PROTONIX [Concomitant]
  5. GLUCOVANCE [Concomitant]
     Dates: end: 20070101
  6. LESCOL XL [Concomitant]
  7. TOPROL-XL [Concomitant]
  8. TAPAZOLE [Concomitant]
  9. PREMARIN [Concomitant]
  10. CHANTIX [Concomitant]
  11. ASPIRIN [Concomitant]

REACTIONS (4)
  - ANXIETY [None]
  - CARDIAC FAILURE CONGESTIVE [None]
  - MYOCARDIAL ISCHAEMIA [None]
  - VENTRICULAR TACHYCARDIA [None]
